FAERS Safety Report 20906552 (Version 1)
Quarter: 2022Q2

REPORT INFORMATION
  Report Type: Spontaneous
  Country: US (occurrence: None)
  Receive Date: 20220602
  Receipt Date: 20220602
  Transmission Date: 20220720
  Serious: Yes (Disabling)
  Sender: FDA-Public Use
  Company Number: None

PATIENT
  Age: 68 Year
  Sex: Female
  Weight: 82.8 kg

DRUGS (1)
  1. CLOPIDOGREL [Suspect]
     Active Substance: CLOPIDOGREL BISULFATE
     Indication: Thrombosis
     Dosage: OTHER QUANTITY : 30 CAPSULE(S);?FREQUENCY : DAILY;?
     Route: 048
     Dates: start: 20200415, end: 20201020

REACTIONS (9)
  - Gastrointestinal pain [None]
  - Internal haemorrhage [None]
  - Skin exfoliation [None]
  - Skin burning sensation [None]
  - Hypoaesthesia [None]
  - Feeling cold [None]
  - Blindness unilateral [None]
  - Optic nerve injury [None]
  - Muscle disorder [None]

NARRATIVE: CASE EVENT DATE: 20200615
